FAERS Safety Report 7250471-0 (Version None)
Quarter: 2011Q1

REPORT INFORMATION
  Report Type: 
  Country: None (occurrence: None)
  Receive Date: 20110128
  Receipt Date: 20110120
  Transmission Date: 20110831
  Serious: Yes (Other)
  Sender: FDA-Public Use
  Company Number: DE-BAXTER-2011BH001707

PATIENT
  Age: 75 Year
  Sex: Female

DRUGS (1)
  1. GAMMAGARD LIQUID [Suspect]
     Indication: GUILLAIN-BARRE SYNDROME
     Route: 042
     Dates: start: 20110110, end: 20110110

REACTIONS (2)
  - ANTI-ERYTHROCYTE ANTIBODY POSITIVE [None]
  - HAEMOLYSIS [None]
